FAERS Safety Report 17694382 (Version 3)
Quarter: 2020Q3

REPORT INFORMATION
  Report Type: Report from Study
  Country: CA (occurrence: CA)
  Receive Date: 20200422
  Receipt Date: 20200720
  Transmission Date: 20201102
  Serious: Yes (Hospitalization, Other)
  Sender: FDA-Public Use
  Company Number: PHHY2016CA155393

PATIENT
  Age: 76 Year
  Sex: Female

DRUGS (5)
  1. SANDOSTATIN LAR DEPOT [Suspect]
     Active Substance: OCTREOTIDE ACETATE
  2. CYANOCOBALAMIN. [Concomitant]
     Active Substance: CYANOCOBALAMIN
     Indication: PRODUCT USED FOR UNKNOWN INDICATION
     Dosage: 1 DF, QD
     Route: 048
  3. SANDOSTATIN LAR DEPOT [Suspect]
     Active Substance: OCTREOTIDE ACETATE
  4. SANDOSTATIN LAR DEPOT [Suspect]
     Active Substance: OCTREOTIDE ACETATE
     Indication: METASTATIC CARCINOID TUMOUR
     Dosage: 30 MG, QMO
     Route: 030
     Dates: start: 20150622
  5. GLICLAZIDE [Concomitant]
     Active Substance: GLICLAZIDE
     Indication: PRODUCT USED FOR UNKNOWN INDICATION
     Dosage: 4 DF, QD
     Route: 048

REACTIONS (17)
  - Nasopharyngitis [Unknown]
  - Anaemia [Unknown]
  - Fatigue [Unknown]
  - Blood pressure increased [Unknown]
  - Influenza [Unknown]
  - Rectal haemorrhage [Unknown]
  - Second primary malignancy [Unknown]
  - Haemorrhoids [Unknown]
  - Breast mass [Unknown]
  - Blood pressure systolic increased [Unknown]
  - Urinary tract infection [Unknown]
  - Asthenia [Unknown]
  - Diabetes mellitus [Unknown]
  - Dyspnoea [Unknown]
  - Blood glucose fluctuation [Unknown]
  - Drug intolerance [Unknown]
  - Breast cancer [Unknown]

NARRATIVE: CASE EVENT DATE: 2016
